FAERS Safety Report 7416470-0 (Version None)
Quarter: 2011Q2

REPORT INFORMATION
  Report Type: 
  Country: None (occurrence: None)
  Receive Date: 20110414
  Receipt Date: 20091121
  Transmission Date: 20111010
  Serious: Yes (Hospitalization, Other)
  Sender: FDA-Public Use
  Company Number: US-BAYER-200940955NA

PATIENT
  Age: 56 Year
  Sex: Male
  Weight: 65.76 kg

DRUGS (10)
  1. HEPARIN [Concomitant]
     Dosage: UNK
     Route: 042
     Dates: start: 20060711, end: 20060713
  2. TRASYLOL [Suspect]
     Indication: CORONARY ARTERY BYPASS
     Route: 042
     Dates: start: 20060714
  3. COREG [Concomitant]
     Dosage: 25 MG, BID
     Route: 048
  4. CAPTOPRIL [Concomitant]
     Dosage: 12.5 MG, TID
     Route: 048
     Dates: start: 20060711
  5. NITROGLYCERIN [Concomitant]
     Dosage: 1 INCH EVERY 6 HOURS
     Route: 062
     Dates: start: 20060711
  6. ATENOLOL [Concomitant]
     Dosage: UNK
  7. LIPITOR [Concomitant]
     Dosage: 40 MG, QD
     Route: 048
  8. ALLOPURINOL [Concomitant]
  9. PROCARDIA [Concomitant]
  10. ACETYLSALICYLIC ACID SRT [Concomitant]
     Dosage: 325 MG, QD
     Route: 048
     Dates: start: 20060711

REACTIONS (10)
  - FEAR [None]
  - RENAL FAILURE [None]
  - RENAL INJURY [None]
  - UNEVALUABLE EVENT [None]
  - INJURY [None]
  - ANXIETY [None]
  - STRESS [None]
  - ANHEDONIA [None]
  - PAIN [None]
  - EMOTIONAL DISTRESS [None]
